FAERS Safety Report 19211784 (Version 1)
Quarter: 2021Q2

REPORT INFORMATION
  Report Type: Spontaneous
  Country: US (occurrence: US)
  Receive Date: 20210504
  Receipt Date: 20210504
  Transmission Date: 20210717
  Serious: Yes (Hospitalization)
  Sender: FDA-Public Use
  Company Number: US-PRINSTON PHARMACEUTICAL INC.-2021PRN00152

PATIENT
  Age: 10 Month
  Sex: Female

DRUGS (1)
  1. VENLAFAXINE [Suspect]
     Active Substance: VENLAFAXINE HYDROCHLORIDE
     Dosage: ^PILL^
     Route: 048

REACTIONS (7)
  - Overdose [Recovered/Resolved]
  - Accidental exposure to product by child [Recovered/Resolved]
  - Cardiogenic shock [Recovered/Resolved]
  - Ventricular tachycardia [Recovered/Resolved]
  - Status epilepticus [Recovered/Resolved]
  - Brugada syndrome [Recovered/Resolved]
  - Stress cardiomyopathy [Recovered/Resolved]
